FAERS Safety Report 25204669 (Version 2)
Quarter: 2025Q2

REPORT INFORMATION
  Report Type: Spontaneous
  Country: DE (occurrence: DE)
  Receive Date: 20250416
  Receipt Date: 20250528
  Transmission Date: 20250716
  Serious: Yes (Other)
  Sender: ROCHE
  Company Number: DE-ROCHE-10000252686

PATIENT
  Age: 57 Year
  Sex: Female

DRUGS (1)
  1. OCREVUS [Suspect]
     Active Substance: OCRELIZUMAB
     Indication: Multiple sclerosis
     Dosage: LAST DOE WAS RECEIVED ON SEP/2024
     Route: 042
     Dates: start: 20220127

REACTIONS (1)
  - Adenocarcinoma of appendix [Recovered/Resolved]
